FAERS Safety Report 9438923 (Version 3)
Quarter: 2013Q3

REPORT INFORMATION
  Report Type: Report from Study
  Country: US (occurrence: US)
  Receive Date: 20130802
  Receipt Date: 20130925
  Transmission Date: 20140515
  Serious: Yes (Death, Hospitalization, Other)
  Sender: FDA-Public Use
  Company Number: US-ALEXION PHARMACEUTICALS INC.-A201301709

PATIENT
  Age: 54 Year
  Sex: Female
  Weight: 97.5 kg

DRUGS (73)
  1. SOLIRIS [Suspect]
     Indication: HAEMOLYTIC URAEMIC SYNDROME
     Dosage: 900 MG, SINGLE
     Route: 042
     Dates: start: 20130531, end: 20130531
  2. MORPHINE SULFATE [Concomitant]
     Indication: PAIN
     Dosage: UNK, Q6H PRN
     Route: 040
     Dates: start: 20130604, end: 20130604
  3. MORPHINE SULFATE [Concomitant]
     Dosage: 2 MG, SINGLE
     Dates: start: 20130604, end: 20130604
  4. MORPHINE SULFATE [Concomitant]
     Dosage: 2 MG, SINGLE
     Route: 040
     Dates: start: 20130604, end: 20130604
  5. MORPHINE SULFATE [Concomitant]
     Dosage: 4 MG, SINGLE
     Dates: start: 20130602, end: 20130602
  6. LORAZEPAM [Concomitant]
     Dosage: 2 MG, SINGLE
     Dates: start: 20130604, end: 20130604
  7. LORAZEPAM [Concomitant]
     Dosage: 1 MG, SINGLE
     Route: 042
     Dates: start: 20130604, end: 20130604
  8. VANCOMYCIN [Concomitant]
     Dosage: 100 ML @ 66.67 MLS/HR, ONCE
     Route: 042
     Dates: start: 20130603, end: 20130603
  9. VANCOMYCIN [Concomitant]
     Dosage: UNK
     Route: 042
     Dates: start: 20130601, end: 20130601
  10. VANCOMYCIN [Concomitant]
     Dosage: 100 ML @ 66.667 MLS/HR, ONCE
     Dates: start: 20130531, end: 20130531
  11. VANCOMYCIN [Concomitant]
     Dosage: UNK, ONCE PRN
     Dates: start: 20130528, end: 20130604
  12. VANCOMYCIN [Concomitant]
     Dosage: 250 ML @ 166.667 MLS/HR, Q12H
     Route: 042
     Dates: start: 20130528, end: 20130528
  13. LACTOBACILLUS RHAMNOSUS [Concomitant]
     Dosage: 1 CAP, QD
     Route: 048
     Dates: start: 20130602, end: 20130602
  14. AMLODIPINE [Concomitant]
     Dosage: 5 MG, BID
     Route: 048
     Dates: start: 20130501, end: 20130602
  15. CLONIDINE HCL [Concomitant]
     Indication: BLOOD PRESSURE
     Dosage: 1 PATCH, QW
     Route: 061
     Dates: start: 20130602, end: 20130604
  16. CLONIDINE HCL [Concomitant]
     Dosage: 0.1 MG, Q6H PRN
     Route: 048
     Dates: start: 20130518, end: 20130529
  17. CLONIDINE HCL [Concomitant]
     Dosage: .3 MG, BID
     Route: 048
     Dates: start: 20130429, end: 20130602
  18. LASIX [Concomitant]
     Dosage: 40 MG, SINGLE
     Route: 040
     Dates: start: 20130602, end: 20130602
  19. LASIX [Concomitant]
     Dosage: 20 MG, SINGLE
     Route: 040
     Dates: start: 20130528, end: 20130528
  20. LASIX [Concomitant]
     Dosage: 20 MG, SINGLE
     Route: 040
     Dates: start: 20130526, end: 20130526
  21. LASIX [Concomitant]
     Dosage: 20 MG, SINGLE
     Route: 042
     Dates: start: 20130525, end: 20130525
  22. LASIX [Concomitant]
     Dosage: 40 MG, SINGLE
     Route: 040
     Dates: start: 20130518, end: 20130518
  23. LASIX [Concomitant]
     Dosage: 20 MG, SINGLE
     Route: 040
     Dates: start: 20130517, end: 20130517
  24. LEVOFLOXACIN [Concomitant]
     Dosage: 150 ML @ 100 MLS/HR, Q48 H
     Route: 042
     Dates: start: 20130531, end: 20130602
  25. LEVOFLOXACIN [Concomitant]
     Dosage: UNK, 150 ML @ 100 MLS/HR, Q48H
     Route: 042
     Dates: start: 20130518, end: 20130528
  26. LEVOFLOXACIN [Concomitant]
     Dosage: UNK, 150 ML @ 100 MLS/HR, Q48H
     Route: 042
     Dates: start: 20130530, end: 20130530
  27. WARFARIN SODIUM [Concomitant]
     Dosage: 1 MG, QD
     Route: 048
     Dates: start: 20130531, end: 20130601
  28. WARFARIN SODIUM [Concomitant]
     Dosage: 5 MG, QD
     Route: 048
     Dates: start: 20130529, end: 20130531
  29. WARFARIN SODIUM [Concomitant]
     Dosage: 3 MG, QD
     Route: 048
     Dates: start: 20130522, end: 20130525
  30. WARFARIN SODIUM [Concomitant]
     Dosage: 5 MG, QD
     Route: 048
     Dates: start: 20130515, end: 20130516
  31. WARFARIN SODIUM [Concomitant]
     Dosage: 5 MG, SINGLE
     Route: 048
     Dates: start: 20130514, end: 20130514
  32. WARFARIN SODIUM [Concomitant]
     Dosage: 6 MG, QD
     Route: 048
     Dates: start: 20130509, end: 20130509
  33. WARFARIN SODIUM [Concomitant]
     Dosage: 5 MG, QD
     Route: 048
     Dates: start: 20130507, end: 20130512
  34. WARFARIN SODIUM [Concomitant]
     Dosage: 4 MG, QD
     Route: 048
     Dates: start: 20130506, end: 20130507
  35. WARFARIN SODIUM [Concomitant]
     Dosage: 3 MG, SINGLE
     Route: 048
     Dates: start: 20130505, end: 20130505
  36. METHYLPREDNISOLONE SODIUM SUCCINATE [Concomitant]
     Dosage: 125 MG, QD
     Route: 040
     Dates: start: 20130530, end: 20130601
  37. METHYLPREDNISOLONE SODIUM SUCCINATE [Concomitant]
     Dosage: 32 DF, QD
     Route: 040
     Dates: start: 20130529, end: 20130530
  38. OLANZAPINE [Concomitant]
     Indication: AGITATION
     Dosage: 5 MG, QID
     Route: 030
     Dates: start: 20130530, end: 20130604
  39. OLANZAPINE [Concomitant]
     Dosage: 5 MG, QID, DISSOLVE
     Dates: start: 20130530, end: 20130604
  40. OLANZAPINE [Concomitant]
     Dosage: 5 MG, Q6H PRN
     Dates: start: 20130516, end: 20130530
  41. OLANZAPINE [Concomitant]
     Dosage: 5 MG, Q6H PRN
     Route: 030
     Dates: start: 20130516, end: 20130530
  42. OLANZAPINE [Concomitant]
     Dosage: 5 MG, SINGLE
     Dates: start: 20130516, end: 20130516
  43. OLANZAPINE [Concomitant]
     Dosage: 5 MG, Q4H PRN
     Route: 048
     Dates: start: 20130505, end: 20130516
  44. ENOXAPARIN [Concomitant]
     Dosage: 100 MG, QD
     Route: 058
     Dates: start: 20130530, end: 20130531
  45. ENOXAPARIN [Concomitant]
     Dosage: 90 MG, BID
     Route: 058
     Dates: start: 20130502, end: 20130502
  46. IMMUNE GLOBULIN [Concomitant]
     Dosage: UNK, Q24H
     Route: 042
     Dates: start: 20130530, end: 20130602
  47. PIPERACILLIN SODIUM W/TAZOBACTAM [Concomitant]
     Dosage: 50 ML @ 100 ML/HR, Q6H
     Route: 042
     Dates: start: 20130529, end: 20130604
  48. DEXMEDETOMIDINE HCL [Concomitant]
     Route: 042
     Dates: start: 20130529, end: 20130604
  49. NICARDIPINE HCL [Concomitant]
     Route: 042
     Dates: start: 20130529, end: 20130604
  50. HEPARIN SODIUM [Concomitant]
     Indication: CATHETER MANAGEMENT
     Dosage: 150 UNITS, BID
     Route: 042
     Dates: start: 20130529, end: 20130604
  51. HEPARIN SODIUM [Concomitant]
     Dosage: 150 DF, BID
     Route: 042
     Dates: start: 20130505, end: 20130509
  52. HEPARIN SODIUM [Concomitant]
     Dosage: 150 DF, PRN
     Route: 042
     Dates: start: 20130505, end: 20130509
  53. PANTOPRAZOLE [Concomitant]
     Dosage: 40 MG, BID
     Route: 040
     Dates: start: 20130529, end: 20130604
  54. PANTOPRAZOLE [Concomitant]
     Dosage: 40 MG, BID
     Route: 048
     Dates: start: 20130502, end: 20130602
  55. PANTOPRAZOLE [Concomitant]
     Dosage: 80 MG, SINGLE
     Route: 040
     Dates: start: 20130428, end: 20130428
  56. PANTOPRAZOLE [Concomitant]
     Dosage: UNK, 100 ML @ 10 MLS/HR Q10 H
     Route: 042
     Dates: start: 20130428, end: 20130501
  57. MINOXIDIL [Concomitant]
     Dosage: 10 MG, BID
     Route: 048
     Dates: start: 20130528, end: 20130602
  58. MINOXIDIL [Concomitant]
     Dosage: 7.5 MG, BID
     Route: 048
     Dates: start: 20130525, end: 20130528
  59. MINOXIDIL [Concomitant]
     Dosage: 5 MG, UNK
     Route: 048
     Dates: start: 20130523, end: 20130525
  60. MINOXIDIL [Concomitant]
     Dosage: 2.5 MG, BID
     Route: 048
     Dates: start: 20130519, end: 20130523
  61. ACETAMINOPHEN [Concomitant]
     Indication: PYREXIA
     Dosage: 650 MG, SINGLE
     Route: 048
     Dates: start: 20130521, end: 20130521
  62. ACETAMINOPHEN [Concomitant]
     Dosage: 650 MG, Q6H PRN
     Route: 048
     Dates: start: 20130521, end: 20130604
  63. ACETAMINOPHEN [Concomitant]
     Dosage: 650 MG, Q4H PRN
     Route: 048
     Dates: start: 20130428, end: 20130521
  64. ACETAMINOPHEN [Concomitant]
     Dosage: 650 MG, Q4H PRN
     Route: 054
     Dates: start: 20130428, end: 20130604
  65. EPOETIN ALFA [Concomitant]
     Dosage: UNK, 40,000 UNIT
     Route: 058
     Dates: start: 20130515, end: 20130604
  66. LABETALOL [Concomitant]
     Indication: BLOOD PRESSURE SYSTOLIC INCREASED
     Dosage: 800 MG, TID
     Route: 048
     Dates: start: 20130503, end: 20130602
  67. LABETALOL [Concomitant]
     Dosage: 400 MG, TID
     Route: 048
     Dates: start: 20120502, end: 20130503
  68. LABETALOL [Concomitant]
     Dosage: 200 MG, TID
     Route: 048
     Dates: start: 20130501, end: 20130502
  69. LABETALOL [Concomitant]
     Dosage: 5 MG Q4H PRN
     Route: 040
     Dates: start: 20130516, end: 20130518
  70. LABETALOL [Concomitant]
     Dosage: 400 MG, SINGLE
     Route: 048
     Dates: start: 20130514, end: 20130514
  71. HALOPERIDOL LACTATE [Concomitant]
     Indication: AGITATION
     Dosage: UNK, Q4H PRN
     Route: 030
     Dates: start: 20130505, end: 20130604
  72. HALOPERIDOL LACTATE [Concomitant]
     Indication: PSYCHOTIC DISORDER
     Dosage: UNK, Q4H PRN
     Route: 042
     Dates: start: 20130505, end: 20130604
  73. ONDANSETRON HYDROCHLORIDE [Concomitant]
     Indication: NAUSEA
     Dosage: 4 MG, Q6H PRN
     Route: 040
     Dates: start: 20130428, end: 20130604

REACTIONS (2)
  - Multi-organ failure [Fatal]
  - Acute respiratory failure [Fatal]
